FAERS Safety Report 23877264 (Version 2)
Quarter: 2024Q2

REPORT INFORMATION
  Report Type: Spontaneous
  Country: BE (occurrence: BE)
  Receive Date: 20240521
  Receipt Date: 20240607
  Transmission Date: 20240716
  Serious: Yes (Hospitalization, Other)
  Sender: FDA-Public Use
  Company Number: BE-STRIDES ARCOLAB LIMITED-2024SP005807

PATIENT
  Age: 52 Year
  Sex: Male

DRUGS (5)
  1. DISULFIRAM [Suspect]
     Active Substance: DISULFIRAM
     Indication: Alcohol abuse
     Dosage: 400 MILLIGRAM, 2 TIMES A WEEK
     Route: 065
  2. DISULFIRAM [Suspect]
     Active Substance: DISULFIRAM
     Dosage: 400 MILLIGRAM, QD
     Route: 065
  3. PAROXETINE [Concomitant]
     Active Substance: PAROXETINE
     Indication: Depression
     Dosage: 40 MILLIGRAM, QD
     Route: 065
  4. AMITRIPTYLINE [Concomitant]
     Active Substance: AMITRIPTYLINE
     Indication: Depression
     Dosage: 75 MILLIGRAM, QD
     Route: 065
  5. QUETIAPINE [Concomitant]
     Active Substance: QUETIAPINE
     Indication: Depression
     Dosage: 75 MILLIGRAM, QD
     Route: 065

REACTIONS (16)
  - Toxic encephalopathy [Recovered/Resolved]
  - Fall [Recovered/Resolved]
  - Memory impairment [Recovered/Resolved]
  - Apathy [Recovered/Resolved]
  - Psychomotor retardation [Recovered/Resolved]
  - Dyspraxia [Recovered/Resolved]
  - Tooth disorder [Recovered/Resolved]
  - Dysarthria [Recovered/Resolved]
  - Heart rate increased [Recovered/Resolved]
  - Blood pressure increased [Recovered/Resolved]
  - Aspartate aminotransferase increased [Recovered/Resolved]
  - Accidental overdose [Unknown]
  - Confusional state [Recovered/Resolved]
  - Gait disturbance [Recovered/Resolved]
  - Anxiety [Recovered/Resolved]
  - Depression [Recovered/Resolved]
